FAERS Safety Report 10390753 (Version 2)
Quarter: 2014Q3

REPORT INFORMATION
  Report Type: Report from Study
  Country: US (occurrence: US)
  Receive Date: 20140818
  Receipt Date: 20140818
  Transmission Date: 20150326
  Serious: Yes (Other)
  Sender: FDA-Public Use
  Company Number: US-BAYER-2014-054953

PATIENT
  Age: 69 Year
  Sex: Male

DRUGS (1)
  1. NEXAVAR [Suspect]
     Active Substance: SORAFENIB
     Indication: RENAL CELL CARCINOMA
     Dosage: 400 MG, BID
     Route: 048
     Dates: start: 20140321, end: 20140708

REACTIONS (15)
  - Paraesthesia [None]
  - Fatigue [None]
  - Rash [None]
  - Drug ineffective [None]
  - Anaemia [None]
  - Skin exfoliation [Recovering/Resolving]
  - Dyspnoea [Not Recovered/Not Resolved]
  - Epistaxis [Recovered/Resolved]
  - Systolic hypertension [None]
  - Cerebrovascular accident [None]
  - VIIth nerve paralysis [None]
  - Brain scan abnormal [None]
  - Pruritus [Not Recovered/Not Resolved]
  - Blood glucose increased [Not Recovered/Not Resolved]
  - Renal cell carcinoma [None]

NARRATIVE: CASE EVENT DATE: 20140321
